FAERS Safety Report 5261595-1 (Version None)
Quarter: 2007Q1

REPORT INFORMATION
  Report Type: 
  Country: None (occurrence: None)
  Receive Date: 20061218
  Receipt Date: 20060807
  Transmission Date: 20070707
  Serious: Yes (Other)
  Sender: FDA-Public Use
  Company Number: US200606004083

PATIENT
  Age: 58 Year
  Sex: Male

DRUGS (3)
  1. CIALIS [Suspect]
     Dosage: 20 MG
     Dates: start: 20060531, end: 20060610
  2. VITAMINS [Concomitant]
  3. FLAXSEED OIL (LINSEED OIL) [Concomitant]

REACTIONS (5)
  - GLOSSODYNIA [None]
  - INSOMNIA [None]
  - LIP PAIN [None]
  - NECK PAIN [None]
  - SWELLING FACE [None]
